FAERS Safety Report 4696612-0 (Version None)
Quarter: 2005Q2

REPORT INFORMATION
  Report Type: 
  Country: None (occurrence: None)
  Receive Date: 20050620
  Receipt Date: 20050302
  Transmission Date: 20051028
  Serious: Yes (Other)
  Sender: FDA-Public Use
  Company Number: 200510233US

PATIENT
  Age: 59 Year
  Sex: Female

DRUGS (10)
  1. LANTUS [Suspect]
     Indication: DIABETES MELLITUS NON-INSULIN-DEPENDENT
     Dosage: 30 U HS SC
     Route: 058
     Dates: start: 20041216
  2. LANTUS [Suspect]
     Indication: DIABETES MELLITUS NON-INSULIN-DEPENDENT
     Dosage: 15 U HS SC
     Route: 058
  3. INSULIN HUMAN [Concomitant]
  4. BLOOD PRESSURE PILL (NOS) [Concomitant]
  5. NEURONTIN [Concomitant]
  6. METOPROLOL [Concomitant]
  7. CALCIUM GLUCONATE [Concomitant]
  8. ETODOLAC [Concomitant]
  9. EZETIMIBE (ZETIA                                 /USA/) [Concomitant]
  10. LISINOPRIL (LIPRIL) [Concomitant]

REACTIONS (4)
  - BLOOD GLUCOSE INCREASED [None]
  - HYPOGLYCAEMIA [None]
  - HYPOGLYCAEMIC COMA [None]
  - INCOHERENT [None]
